FAERS Safety Report 15369150 (Version 1)
Quarter: 2020Q3

REPORT INFORMATION
  Report Type: Spontaneous
  Country: GB (occurrence: GB)
  Receive Date: 20180911
  Receipt Date: 20180911
  Transmission Date: 20201105
  Serious: Yes (Other)
  Sender: FDA-Public Use
  Company Number: GB-SUN PHARMACEUTICAL INDUSTRIES LTD-2018RR-184060

PATIENT
  Age: 63 Year
  Sex: Female

DRUGS (1)
  1. IBANDRONIC ACID. [Suspect]
     Active Substance: IBANDRONIC ACID
     Indication: OSTEOPOROSIS
     Dosage: ()
     Route: 065
     Dates: start: 2007, end: 2010

REACTIONS (5)
  - Erythema multiforme [Recovered/Resolved]
  - Obstructive airways disorder [Recovered/Resolved]
  - Blood blister [Not Recovered/Not Resolved]
  - Lower respiratory tract infection [Recovered/Resolved]
  - Oral candidiasis [Recovered/Resolved]
